FAERS Safety Report 14145047 (Version 1)
Quarter: 2017Q4

REPORT INFORMATION
  Report Type: Report from Study
  Country: TW (occurrence: TW)
  Receive Date: 20171031
  Receipt Date: 20171031
  Transmission Date: 20180321
  Serious: Yes (Death, Hospitalization)
  Sender: FDA-Public Use
  Company Number: TW-ELI_LILLY_AND_COMPANY-TW201710008190

PATIENT
  Age: 78 Year
  Sex: Female

DRUGS (5)
  1. MORPHINE HCL [Suspect]
     Active Substance: MORPHINE HYDROCHLORIDE
     Indication: PRODUCT USED FOR UNKNOWN INDICATION
     Dosage: 0.5 DF, OTHER
     Route: 042
     Dates: start: 20171007
  2. FOLINIC ACID [Concomitant]
     Active Substance: LEUCOVORIN
     Indication: COLORECTAL CANCER METASTATIC
     Dosage: UNK, UNKNOWN
     Dates: start: 20170329
  3. CETUXIMAB. [Suspect]
     Active Substance: CETUXIMAB
     Indication: COLORECTAL CANCER METASTATIC
     Dosage: 500 MG/M2, ONCE IN TWO WEEKS
     Route: 042
     Dates: start: 20170517
  4. FLUOROURACIL. [Concomitant]
     Active Substance: FLUOROURACIL
     Indication: COLORECTAL CANCER METASTATIC
     Dosage: UNK, UNKNOWN
     Dates: start: 20170329
  5. OXALIPLATIN. [Concomitant]
     Active Substance: OXALIPLATIN
     Indication: COLORECTAL CANCER METASTATIC
     Dosage: UNK, UNKNOWN
     Dates: start: 20170329

REACTIONS (11)
  - Depressed level of consciousness [Fatal]
  - Nodule [Unknown]
  - Malignant neoplasm progression [Unknown]
  - Cerebral infarction [Unknown]
  - Pneumonia aspiration [Unknown]
  - Malnutrition [Unknown]
  - Pleural effusion [Unknown]
  - Off label use [Unknown]
  - Neutropenia [Unknown]
  - Meningitis [Fatal]
  - Abdominal distension [Unknown]

NARRATIVE: CASE EVENT DATE: 201710
